FAERS Safety Report 22122785 (Version 1)
Quarter: 2023Q1

REPORT INFORMATION
  Report Type: Spontaneous
  Country: US (occurrence: US)
  Receive Date: 20230322
  Receipt Date: 20230322
  Transmission Date: 20230418
  Serious: No
  Sender: FDA-Public Use
  Company Number: US-JNJFOC-20230331787

PATIENT
  Age: 54 Year
  Sex: Male

DRUGS (1)
  1. REMICADE [Suspect]
     Active Substance: INFLIXIMAB
     Indication: Crohn^s disease
     Route: 041

REACTIONS (9)
  - Infusion related reaction [Unknown]
  - Blood pressure increased [Recovered/Resolved]
  - Hyperhidrosis [Unknown]
  - Flushing [Recovered/Resolved]
  - Feeling hot [Unknown]
  - Pallor [Recovered/Resolved]
  - Defaecation urgency [Unknown]
  - Feeling abnormal [Unknown]
  - Incorrect dose administered [Unknown]
